FAERS Safety Report 17361540 (Version 1)
Quarter: 2020Q1

REPORT INFORMATION
  Report Type: Spontaneous
  Country: US (occurrence: US)
  Receive Date: 20200117
  Receipt Date: 20200117
  Transmission Date: 20200409
  Serious: Yes (Other)
  Sender: FDA-Public Use
  Company Number: None

PATIENT
  Sex: Female

DRUGS (11)
  1. DEXILANT [Concomitant]
     Active Substance: DEXLANSOPRAZOLE
  2. GLATIRAMER [Suspect]
     Active Substance: GLATIRAMER
     Indication: MULTIPLE SCLEROSIS
     Route: 058
  3. AMBIEN [Concomitant]
     Active Substance: ZOLPIDEM TARTRATE
  4. NORTIPTYLIN [Concomitant]
  5. AMANTADINE. [Concomitant]
     Active Substance: AMANTADINE HYDROCHLORIDE
  6. NEURONTIN [Concomitant]
     Active Substance: GABAPENTIN
  7. METFORMIN [Concomitant]
     Active Substance: METFORMIN HYDROCHLORIDE
  8. ZOCOR [Concomitant]
     Active Substance: SIMVASTATIN
  9. METOCLOPRAM [Concomitant]
     Active Substance: METOCLOPRAMIDE
  10. NYSTATIN. [Concomitant]
     Active Substance: NYSTATIN
  11. SYNTHROID [Concomitant]
     Active Substance: LEVOTHYROXINE SODIUM

REACTIONS (3)
  - Cerebrovascular accident [None]
  - Injection site pain [None]
  - Injection site pruritus [None]
